FAERS Safety Report 4332008-9 (Version None)
Quarter: 2004Q2

REPORT INFORMATION
  Report Type: 
  Country: None (occurrence: None)
  Receive Date: 20040405
  Receipt Date: 20031219
  Transmission Date: 20050107
  Serious: No
  Sender: FDA-Public Use
  Company Number: US-GLAXOSMITHKLINE-A0444076A

PATIENT
  Age: 77 Year
  Sex: Female

DRUGS (5)
  1. SEREVENT [Suspect]
     Route: 055
  2. FLOVENT [Concomitant]
  3. ATROVENT [Concomitant]
     Dates: end: 20031215
  4. SPIRIVA [Concomitant]
     Dates: start: 20031215
  5. VENTOLIN [Concomitant]

REACTIONS (1)
  - DYSPNOEA EXERTIONAL [None]
